FAERS Safety Report 8031334 (Version 7)
Quarter: 2012Q4

REPORT INFORMATION
  Report Type: 
  Country: US (occurrence: US)
  Receive Date: 20110712
  Receipt Date: 20121026
  Transmission Date: 20130627
  Serious: Yes (Hospitalization, Disabling, Other)
  Sender: FDA-Public Use
  Company Number: US-009507513-1107USA01265

PATIENT

DRUGS (12)
  1. FOSAMAX [Suspect]
     Indication: OSTEOPOROSIS
     Dosage: 70 mg, QW
     Route: 048
     Dates: start: 1996
  2. FOSAMAX [Suspect]
     Dosage: 10 mg, qd
     Route: 048
     Dates: start: 1996
  3. FOSAMAX D [Suspect]
     Indication: OSTEOPOROSIS
     Dosage: 70 mg, QW
     Route: 048
     Dates: start: 1996, end: 200909
  4. ALENDRONATE SODIUM [Suspect]
     Dosage: 70 mg, UNK
     Dates: start: 20080923
  5. ELOCON [Concomitant]
     Indication: PSORIASIS
     Dates: start: 19960119
  6. CALCIUM (UNSPECIFIED) [Concomitant]
     Indication: OSTEOPOROSIS
     Dates: start: 19930914
  7. CELEXA [Concomitant]
     Indication: DEPRESSION
     Dosage: 20 mg, qd
     Route: 048
     Dates: start: 19990727
  8. EVISTA [Concomitant]
     Indication: OSTEOPOROSIS
     Dosage: 60 mg, qd
     Dates: start: 19980624
  9. VIACTIV SOFT CALCIUM CHEWS [Concomitant]
     Indication: OSTEOPOROSIS
     Dates: start: 20021001
  10. DERMA-SMOOTHE/FS TOPICAL OIL [Concomitant]
     Indication: PSORIASIS
     Route: 061
     Dates: start: 20080707
  11. TUMS E-X [Concomitant]
     Indication: OSTEOPOROSIS
     Dates: start: 19940127
  12. ACTONEL [Concomitant]
     Indication: OSTEOPOROSIS
     Dates: start: 20080707

REACTIONS (78)
  - Femur fracture [Unknown]
  - Radius fracture [Unknown]
  - Breast cancer [Unknown]
  - Deafness [Unknown]
  - Adverse event [Unknown]
  - Cholecystitis acute [Unknown]
  - Femur fracture [Unknown]
  - Vaginal odour [Unknown]
  - Frequent bowel movements [Unknown]
  - Arthropathy [Unknown]
  - Cerumen impaction [Unknown]
  - Skin lesion [Unknown]
  - Rib fracture [Unknown]
  - Hiatus hernia [Unknown]
  - Otitis media [Unknown]
  - Sinusitis [Unknown]
  - Bunion [Unknown]
  - Foot deformity [Unknown]
  - Nail disorder [Unknown]
  - Hyperkeratosis [Unknown]
  - Otitis externa [Unknown]
  - Hypercholesterolaemia [Unknown]
  - Onychomycosis [Unknown]
  - Hyperkeratosis [Unknown]
  - Plantar fasciitis [Unknown]
  - Drug intolerance [Unknown]
  - Seborrhoeic keratosis [Unknown]
  - Dermatitis [Unknown]
  - Dysphonia [Unknown]
  - Cerumen impaction [Unknown]
  - Eczema [Unknown]
  - Psoriasis [Unknown]
  - Bursitis [Unknown]
  - Lymphadenopathy [Unknown]
  - Cataract [Unknown]
  - Colon adenoma [Recovered/Resolved]
  - Herpes zoster [Unknown]
  - Temporomandibular joint syndrome [Unknown]
  - Angina pectoris [Unknown]
  - Colon adenoma [Unknown]
  - Urinary tract infection [Unknown]
  - Restless legs syndrome [Unknown]
  - Otitis media [Not Recovered/Not Resolved]
  - Chest discomfort [Recovering/Resolving]
  - Osteoarthritis [Unknown]
  - Kyphosis [Unknown]
  - Varicose vein [Unknown]
  - Scoliosis [Unknown]
  - Drug administration error [Unknown]
  - Cholelithiasis [Unknown]
  - Dysuria [Unknown]
  - Renal cyst [Unknown]
  - Cough [Not Recovered/Not Resolved]
  - Increased tendency to bruise [Unknown]
  - Lip disorder [Unknown]
  - Overdose [Unknown]
  - Nasopharyngitis [Unknown]
  - Gait disturbance [Unknown]
  - Iron deficiency anaemia [Unknown]
  - Intestinal polyp [Unknown]
  - Eustachian tube dysfunction [Unknown]
  - Fall [Unknown]
  - Senile osteoporosis [Unknown]
  - Dermal cyst [Unknown]
  - Anxiety [Unknown]
  - Muscle strain [Unknown]
  - Arthritis [Unknown]
  - Diarrhoea [Unknown]
  - Gastrooesophageal reflux disease [Unknown]
  - Diarrhoea [Unknown]
  - Rash [Unknown]
  - Musculoskeletal discomfort [Unknown]
  - Abdominal discomfort [Unknown]
  - Urticaria [Unknown]
  - Oedema peripheral [Unknown]
  - Constipation [Unknown]
  - Joint swelling [Unknown]
  - Drug ineffective [Unknown]
